FAERS Safety Report 4312083-8 (Version None)
Quarter: 2004Q1

REPORT INFORMATION
  Report Type: 
  Country: None (occurrence: None)
  Receive Date: 20040303
  Receipt Date: 20040218
  Transmission Date: 20041129
  Serious: Yes (Disabling)
  Sender: FDA-Public Use
  Company Number: 2004-UK-00162UK

PATIENT
  Age: 62 Year
  Sex: Male

DRUGS (6)
  1. MEXITIL (0015/0062R) (MEXILETINE HYDROCHLORIDE) (NR) [Suspect]
     Indication: ARRHYTHMIA
     Dosage: 200MG THREE TIMES DAILY (MG, THREE TIMES DAILY) PO
     Route: 048
     Dates: start: 20040116, end: 20040120
  2. BUMETANIDE (NR) [Concomitant]
  3. ISMN (ISOSORBIDE) (NR) [Concomitant]
  4. HUMAN MIXTARD (HUMAN MIXTARD) (NR) [Concomitant]
  5. LOSARTAN (LOSARTAN) (NR) [Concomitant]
  6. WARFARIN (WARFARIN) (NR) [Concomitant]

REACTIONS (3)
  - ARTHRALGIA [None]
  - MUSCULAR WEAKNESS [None]
  - POLYMYALGIA [None]
